FAERS Safety Report 5215255-3 (Version None)
Quarter: 2007Q1

REPORT INFORMATION
  Report Type: 
  Country: None (occurrence: None)
  Receive Date: 20070117
  Receipt Date: 20070109
  Transmission Date: 20070707
  Serious: Yes (Other)
  Sender: FDA-Public Use
  Company Number: GXKR2007GB00626

PATIENT
  Age: 56 Year
  Sex: Male

DRUGS (6)
  1. ASPIRIN [Suspect]
     Indication: CARDIOVASCULAR EVENT PROPHYLAXIS
     Dosage: 75 MG, QD, ORAL
     Route: 048
     Dates: start: 20061204, end: 20061214
  2. IBUPROFEN [Suspect]
     Indication: ANALGESIC EFFECT
     Dosage: 400 MG, QID, ORAL
     Route: 048
     Dates: start: 20061204, end: 20061214
  3. CODEINE PHOSPHATE (CODEINE PHOSPHATE) [Concomitant]
  4. LISINOPRIL [Concomitant]
  5. SIMVASTATIN [Concomitant]
  6. TAMSULOSIN HCL [Concomitant]

REACTIONS (4)
  - CEREBRAL HAEMORRHAGE [None]
  - FAECES DISCOLOURED [None]
  - GASTRIC ULCER [None]
  - GASTROINTESTINAL HAEMORRHAGE [None]
